FAERS Safety Report 18474122 (Version 1)
Quarter: 2020Q4

REPORT INFORMATION
  Report Type: Spontaneous
  Country: US (occurrence: US)
  Receive Date: 20201106
  Receipt Date: 20201106
  Transmission Date: 20210114
  Serious: No
  Sender: FDA-Public Use
  Company Number: US-PFIZER INC-2020425957

PATIENT
  Age: 61 Year
  Sex: Female
  Weight: 86.18 kg

DRUGS (2)
  1. TESSALON [Suspect]
     Active Substance: BENZONATATE
     Indication: LOWER RESPIRATORY TRACT INFECTION
  2. TESSALON [Suspect]
     Active Substance: BENZONATATE
     Indication: VIRAL UPPER RESPIRATORY TRACT INFECTION
     Dosage: 200 MG, 1X/DAY
     Route: 048
     Dates: start: 20201102, end: 20201102

REACTIONS (3)
  - Swollen tongue [Recovering/Resolving]
  - Mouth swelling [Recovering/Resolving]
  - Pharyngeal swelling [Recovering/Resolving]

NARRATIVE: CASE EVENT DATE: 20201102
